FAERS Safety Report 25298395 (Version 1)
Quarter: 2025Q2

REPORT INFORMATION
  Report Type: Spontaneous
  Country: GB (occurrence: GB)
  Receive Date: 20250512
  Receipt Date: 20250512
  Transmission Date: 20250716
  Serious: Yes (Other)
  Sender: ASTELLAS
  Company Number: GB-ASTELLAS-2025-AER-025233

PATIENT
  Age: 37 Year
  Sex: Female
  Weight: 52 kg

DRUGS (1)
  1. ISAVUCONAZOLE [Suspect]
     Active Substance: ISAVUCONAZOLE
     Indication: Product used for unknown indication
     Route: 065

REACTIONS (5)
  - Brain fog [Recovering/Resolving]
  - Tinnitus [Recovering/Resolving]
  - Anxiety [Recovering/Resolving]
  - Fatigue [Recovering/Resolving]
  - Headache [Recovering/Resolving]
